FAERS Safety Report 18602243 (Version 2)
Quarter: 2020Q4

REPORT INFORMATION
  Report Type: Spontaneous
  Country: HU (occurrence: HU)
  Receive Date: 20201210
  Receipt Date: 20201221
  Transmission Date: 20210114
  Serious: Yes (Death, Other)
  Sender: FDA-Public Use
  Company Number: HU-GALDERMA-HU2020050991

PATIENT
  Age: 62 Year
  Sex: Male

DRUGS (10)
  1. CLOBETASOL [Suspect]
     Active Substance: CLOBETASOL
     Indication: CUTANEOUS T-CELL LYMPHOMA STAGE IV
     Route: 061
     Dates: start: 2019
  2. HYDROXYZINE [Concomitant]
     Active Substance: HYDROXYZINE HYDROCHLORIDE
     Indication: PRURITUS
     Route: 065
     Dates: start: 2019
  3. ADCETRIS [Concomitant]
     Active Substance: BRENTUXIMAB VEDOTIN
     Indication: PRURITUS
     Route: 065
     Dates: start: 201911
  4. METHYLPREDNISOLONE ACEPONATE [Concomitant]
     Active Substance: METHYLPREDNISOLONE ACEPONATE
     Indication: CUTANEOUS T-CELL LYMPHOMA STAGE IV
     Route: 065
     Dates: start: 2019
  5. MIRTAZAPINE. [Concomitant]
     Active Substance: MIRTAZAPINE
     Indication: PRURITUS
     Route: 065
     Dates: start: 201910
  6. CETIRIZINE [Concomitant]
     Active Substance: CETIRIZINE HYDROCHLORIDE
     Indication: PRURITUS
     Route: 065
     Dates: start: 2019
  7. BILASTINE [Concomitant]
     Active Substance: BILASTINE
     Indication: PRURITUS
     Route: 065
     Dates: start: 2019
  8. MOMETASONE [Concomitant]
     Active Substance: MOMETASONE
     Indication: CUTANEOUS T-CELL LYMPHOMA STAGE IV
     Route: 065
     Dates: start: 2019
  9. PSORALEN [Concomitant]
     Active Substance: PSORALEN
     Indication: CUTANEOUS T-CELL LYMPHOMA STAGE IV
     Route: 065
  10. INTRON A [Concomitant]
     Active Substance: INTERFERON ALFA-2B
     Indication: PRURITUS
     Dosage: (3X3 MU), TWO INJECTIONS
     Route: 058
     Dates: start: 201909

REACTIONS (3)
  - Drug ineffective for unapproved indication [Recovered/Resolved]
  - Acute myocardial infarction [Fatal]
  - Product use in unapproved indication [Recovered/Resolved]

NARRATIVE: CASE EVENT DATE: 2019
